FAERS Safety Report 11844583 (Version 2)
Quarter: 2015Q4

REPORT INFORMATION
  Report Type: Spontaneous
  Country: CN (occurrence: CN)
  Receive Date: 20151217
  Receipt Date: 20151218
  Transmission Date: 20160305
  Serious: Yes (Other)
  Sender: FDA-Public Use
  Company Number: CN-ELI_LILLY_AND_COMPANY-CN201511007993

PATIENT
  Age: 38 Year
  Sex: Female

DRUGS (1)
  1. HUMALOG MIX50/50 [Suspect]
     Active Substance: INSULIN LISPRO
     Indication: DIABETES MELLITUS
     Dosage: 16 DF, BID
     Route: 058
     Dates: start: 20151111, end: 20151116

REACTIONS (5)
  - Eyelid oedema [Recovered/Resolved]
  - Peripheral swelling [Recovered/Resolved]
  - Blood glucose abnormal [Not Recovered/Not Resolved]
  - Abdominal distension [Recovered/Resolved]
  - Swelling [Recovered/Resolved]

NARRATIVE: CASE EVENT DATE: 20151113
